FAERS Safety Report 5001948-X (Version None)
Quarter: 2006Q2

REPORT INFORMATION
  Report Type: 
  Country: None (occurrence: None)
  Receive Date: 20060515
  Receipt Date: 20051013
  Transmission Date: 20061013
  Serious: Yes (Hospitalization, Disabling, Other)
  Sender: FDA-Public Use
  Company Number: PR-MERCK-0510USA07175

PATIENT
  Age: 56 Year
  Sex: Male
  Weight: 96 kg

DRUGS (12)
  1. VIOXX [Suspect]
     Indication: OSTEOARTHRITIS
     Route: 048
     Dates: start: 19990101, end: 20010401
  2. DOLOREX FORTE [Concomitant]
     Route: 065
  3. CELEBREX [Concomitant]
     Route: 065
     Dates: start: 19990313, end: 20001013
  4. ALPRAZOLAM [Concomitant]
     Indication: DEPRESSION
     Route: 065
     Dates: start: 19990110, end: 20020622
  5. RANITIDINE-BC [Concomitant]
     Route: 065
     Dates: start: 19990210
  6. PRILOSEC [Concomitant]
     Indication: GASTROINTESTINAL DISORDER
     Route: 048
     Dates: start: 19991101, end: 20001230
  7. HYZAAR [Concomitant]
     Indication: HYPERTENSION
     Route: 048
  8. TENORMIN [Concomitant]
     Indication: HYPERTENSION
     Route: 065
  9. SKELAXIN [Concomitant]
     Indication: MUSCLE SPASMS
     Route: 065
  10. LEVOXYL [Concomitant]
     Indication: HYPOTHYROIDISM
     Route: 065
  11. PROZAC [Concomitant]
     Indication: DEPRESSION
     Route: 065
  12. ECOTRIN [Concomitant]
     Route: 065

REACTIONS (11)
  - ARTHRITIS [None]
  - CONVULSION [None]
  - DEEP VEIN THROMBOSIS [None]
  - DEMENTIA ALZHEIMER'S TYPE [None]
  - DIZZINESS [None]
  - MAJOR DEPRESSION [None]
  - MYOCARDIAL INFARCTION [None]
  - NAUSEA [None]
  - PAIN [None]
  - PULMONARY EMBOLISM [None]
  - PULMONARY MASS [None]
